FAERS Safety Report 18643531 (Version 3)
Quarter: 2025Q3

REPORT INFORMATION
  Report Type: Spontaneous
  Country: US (occurrence: US)
  Receive Date: 20201221
  Receipt Date: 20250711
  Transmission Date: 20251021
  Serious: Yes (Other)
  Sender: NOVARTIS
  Company Number: US-NOVARTISPH-NVSC2020US338253

PATIENT
  Age: 15 Year
  Sex: Male

DRUGS (17)
  1. CYCLOSPORINE [Suspect]
     Active Substance: CYCLOSPORINE
     Indication: Epidermolysis bullosa
     Route: 050
  2. MYCOPHENOLATE MOFETIL [Suspect]
     Active Substance: MYCOPHENOLATE MOFETIL
     Indication: Epidermolysis bullosa
     Route: 050
  3. GABAPENTIN [Suspect]
     Active Substance: GABAPENTIN
     Indication: Epidermolysis bullosa
     Route: 050
  4. OMALIZUMAB [Suspect]
     Active Substance: OMALIZUMAB
     Indication: Epidermolysis bullosa
     Route: 050
  5. DOXEPIN [Suspect]
     Active Substance: DOXEPIN
     Indication: Epidermolysis bullosa
     Route: 050
  6. MUPIROCIN [Suspect]
     Active Substance: MUPIROCIN
     Indication: Epidermolysis bullosa
     Route: 050
  7. CANNABIS SATIVA SUBSP. INDICA TOP [Suspect]
     Active Substance: CANNABIS SATIVA SUBSP. INDICA TOP
     Indication: Epidermolysis bullosa
     Route: 050
  8. AMITRIPTYLINE\KETAMINE [Suspect]
     Active Substance: AMITRIPTYLINE\KETAMINE
     Indication: Epidermolysis bullosa
     Route: 050
  9. THALIDOMIDE [Suspect]
     Active Substance: THALIDOMIDE
     Indication: Epidermolysis bullosa
     Route: 050
  10. LENALIDOMIDE [Suspect]
     Active Substance: LENALIDOMIDE
     Indication: Epidermolysis bullosa
     Route: 050
  11. TOFACITINIB [Suspect]
     Active Substance: TOFACITINIB
     Indication: Epidermolysis bullosa
     Route: 050
  12. ACETYLCYSTEINE [Suspect]
     Active Substance: ACETYLCYSTEINE
     Indication: Epidermolysis bullosa
     Route: 050
  13. PREGABALIN [Suspect]
     Active Substance: PREGABALIN
     Indication: Epidermolysis bullosa
     Route: 050
  14. NALTREXONE [Suspect]
     Active Substance: NALTREXONE
     Indication: Epidermolysis bullosa
     Route: 050
  15. MELATONIN [Suspect]
     Active Substance: MELATONIN
     Indication: Epidermolysis bullosa
     Route: 050
  16. MARINOL [Suspect]
     Active Substance: DRONABINOL
     Indication: Epidermolysis bullosa
     Route: 050
  17. CLONIDINE [Suspect]
     Active Substance: CLONIDINE
     Indication: Epidermolysis bullosa
     Route: 050

REACTIONS (2)
  - Epidermolysis bullosa [Recovering/Resolving]
  - Product use in unapproved indication [Unknown]
